FAERS Safety Report 17664852 (Version 1)
Quarter: 2020Q2

REPORT INFORMATION
  Report Type: Spontaneous
  Country: US (occurrence: US)
  Receive Date: 20200412
  Receipt Date: 20200412
  Transmission Date: 20200713
  Serious: No
  Sender: FDA-Public Use
  Company Number: None

PATIENT
  Age: 29 Year
  Sex: Male

DRUGS (1)
  1. EPCLUSA [Suspect]
     Active Substance: SOFOSBUVIR\VELPATASVIR
     Dosage: ?          OTHER DOSE:400-100 MGJ;?
     Route: 048
     Dates: start: 20200201

REACTIONS (2)
  - Fatigue [None]
  - Dizziness [None]

NARRATIVE: CASE EVENT DATE: 20200412
